FAERS Safety Report 21265607 (Version 1)
Quarter: 2022Q3

REPORT INFORMATION
  Report Type: Spontaneous
  Country: CA (occurrence: CA)
  Receive Date: 20220829
  Receipt Date: 20220829
  Transmission Date: 20221027
  Serious: Yes (Hospitalization, Other)
  Sender: FDA-Public Use
  Company Number: CA-ALVOGEN-2022-ALVOGEN-120792

PATIENT
  Age: 28 Year
  Sex: Female

DRUGS (1)
  1. DAPSONE [Suspect]
     Active Substance: DAPSONE
     Indication: Pneumocystis jirovecii pneumonia
     Route: 048

REACTIONS (2)
  - Methaemoglobinaemia [Recovered/Resolved]
  - End stage renal disease [Not Recovered/Not Resolved]
